FAERS Safety Report 21038751 (Version 1)
Quarter: 2022Q3

REPORT INFORMATION
  Report Type: Spontaneous
  Country: US (occurrence: US)
  Receive Date: 20220704
  Receipt Date: 20220704
  Transmission Date: 20221027
  Serious: Yes (Other)
  Sender: FDA-Public Use
  Company Number: US-SA-SAC20220629001881

PATIENT
  Age: 55 Year
  Sex: Male

DRUGS (1)
  1. ZANTAC [Suspect]
     Active Substance: RANITIDINE HYDROCHLORIDE
     Indication: Gastrooesophageal reflux disease
     Dosage: 75 MG150 MG FREQUENCY: OTHER
     Dates: start: 198208, end: 202101

REACTIONS (2)
  - Hepatic cancer stage I [Unknown]
  - Pancreatic carcinoma stage I [Unknown]

NARRATIVE: CASE EVENT DATE: 20180901
